FAERS Safety Report 7043613-3 (Version None)
Quarter: 2010Q4

REPORT INFORMATION
  Report Type: 
  Country: None (occurrence: None)
  Receive Date: 20101013
  Receipt Date: 20101004
  Transmission Date: 20110411
  Serious: Yes (Hospitalization)
  Sender: FDA-Public Use
  Company Number: B0675289A

PATIENT
  Sex: Male
  Weight: 63 kg

DRUGS (6)
  1. PAZOPANIB [Suspect]
     Indication: NEOPLASM
     Dates: start: 20100831, end: 20100910
  2. IFOSFAMIDE [Suspect]
     Indication: NEOPLASM
     Dosage: 3GM2 PER DAY
     Route: 051
     Dates: start: 20100907
  3. LORAZEPAM [Suspect]
     Indication: INSOMNIA
     Dosage: 1MG THREE TIMES PER DAY
     Route: 060
     Dates: start: 20100908
  4. DIOVAN HCT [Concomitant]
  5. DEXAMETHASONE [Concomitant]
     Dates: start: 20091020
  6. METOCLOPRAMIDE [Concomitant]
     Dates: start: 20091020

REACTIONS (3)
  - DISORIENTATION [None]
  - ELECTROLYTE IMBALANCE [None]
  - TOXIC ENCEPHALOPATHY [None]
